FAERS Safety Report 24714775 (Version 1)
Quarter: 2024Q4

REPORT INFORMATION
  Report Type: Spontaneous
  Country: US (occurrence: US)
  Receive Date: 20241210
  Receipt Date: 20241210
  Transmission Date: 20250115
  Serious: Yes (Other)
  Sender: SANOFI AVENTIS
  Company Number: US-SA-2024SA361104

PATIENT
  Age: 67 Year
  Sex: Female

DRUGS (1)
  1. DUPIXENT [Suspect]
     Active Substance: DUPILUMAB
     Indication: Product used for unknown indication
     Dosage: UNK
     Route: 058
     Dates: start: 2021

REACTIONS (10)
  - Faeces discoloured [Not Recovered/Not Resolved]
  - Eye disorder [Unknown]
  - Lacrimation increased [Unknown]
  - Eye pain [Unknown]
  - Cough [Unknown]
  - Aphonia [Unknown]
  - Pain [Unknown]
  - Pain in extremity [Unknown]
  - Headache [Unknown]
  - Polypectomy [Unknown]
